FAERS Safety Report 12743669 (Version 1)
Quarter: 2016Q3

REPORT INFORMATION
  Report Type: Spontaneous
  Country: SG (occurrence: SG)
  Receive Date: 20160914
  Receipt Date: 20160914
  Transmission Date: 20161109
  Serious: Yes (Hospitalization)
  Sender: FDA-Public Use
  Company Number: SG-BAYER-2016-175304

PATIENT
  Age: 65 Year
  Sex: Male

DRUGS (3)
  1. ACETYLSALICYLIC ACID({=100 MG) [Suspect]
     Active Substance: ASPIRIN
     Indication: CEREBROVASCULAR ACCIDENT PROPHYLAXIS
  2. CLOPIDOGREL [Suspect]
     Active Substance: CLOPIDOGREL BISULFATE
     Indication: ANTIPLATELET THERAPY
  3. ATORVASTATIN [Suspect]
     Active Substance: ATORVASTATIN

REACTIONS (6)
  - Ischaemic stroke [Recovering/Resolving]
  - Carotid arterial embolus [Recovering/Resolving]
  - Carotid artery occlusion [Recovering/Resolving]
  - Embolic cerebral infarction [Recovering/Resolving]
  - Drug ineffective [Recovering/Resolving]
  - Cerebral infarction [None]
